FAERS Safety Report 18286082 (Version 1)
Quarter: 2020Q3

REPORT INFORMATION
  Report Type: Report from Study
  Country: CR (occurrence: CR)
  Receive Date: 20200919
  Receipt Date: 20200919
  Transmission Date: 20201103
  Serious: Yes (Other)
  Sender: FDA-Public Use
  Company Number: CR-SA-2020SA252582

PATIENT

DRUGS (6)
  1. ASPIRIN [ACETYLSALICYLIC ACID] [Concomitant]
     Active Substance: ASPIRIN
     Route: 065
  2. HYDROCHLOROTHIAZIDE/IRBESARTAN [Suspect]
     Active Substance: HYDROCHLOROTHIAZIDE\IRBESARTAN
     Indication: HYPERTENSION
     Dosage: 1 DF, QD (STOP DATE: 2018)
     Route: 048
  3. AMLODIPINE BESILATE [Suspect]
     Active Substance: AMLODIPINE BESYLATE
     Dosage: UNK
     Route: 065
  4. AMLODIPINE/IRBESARTAN [Suspect]
     Active Substance: AMLODIPINE BESYLATE\IRBESARTAN
     Indication: BLOOD PRESSURE ABNORMAL
     Dosage: 1 DF, QD
     Route: 065
     Dates: start: 2018
  5. ACETYLSALICYLIC ACID/CLOPIDOGREL BISULFATE [Suspect]
     Active Substance: ASPIRIN\CLOPIDOGREL BISULFATE
     Indication: ANTICOAGULANT THERAPY
     Dosage: STOP DATE: 2018
     Route: 065
  6. DAFLON [DIOSMIN] [Concomitant]
     Active Substance: DIOSMIN
     Route: 065

REACTIONS (5)
  - Choroidal effusion [Recovered/Resolved]
  - Epistaxis [Recovered/Resolved]
  - Peripheral swelling [Recovered/Resolved]
  - Retinal vascular thrombosis [Recovered/Resolved]
  - Hypertension [Recovered/Resolved]

NARRATIVE: CASE EVENT DATE: 2018
